FAERS Safety Report 19719861 (Version 1)
Quarter: 2021Q3

REPORT INFORMATION
  Report Type: Spontaneous
  Country: JP (occurrence: JP)
  Receive Date: 20210819
  Receipt Date: 20210819
  Transmission Date: 20211014
  Serious: Yes (Hospitalization)
  Sender: FDA-Public Use
  Company Number: JP-ROCHE-2890658

PATIENT
  Age: 73 Year
  Sex: Female

DRUGS (2)
  1. ENSPRYNG [Suspect]
     Active Substance: SATRALIZUMAB-MWGE
     Indication: NEUROMYELITIS OPTICA SPECTRUM DISORDER
     Route: 058
     Dates: start: 20210524
  2. CICLOSPORIN [Suspect]
     Active Substance: CYCLOSPORINE
     Indication: PRODUCT USED FOR UNKNOWN INDICATION
     Route: 048

REACTIONS (2)
  - Urinary tract infection [Not Recovered/Not Resolved]
  - Pneumonia [Not Recovered/Not Resolved]
